FAERS Safety Report 24432691 (Version 2)
Quarter: 2025Q1

REPORT INFORMATION
  Report Type: Spontaneous
  Country: US (occurrence: US)
  Receive Date: 20241014
  Receipt Date: 20250313
  Transmission Date: 20250408
  Serious: Yes (Disabling, Other)
  Sender: GLAXOSMITHKLINE
  Company Number: US-GSK-US2024123105

PATIENT

DRUGS (4)
  1. JEMPERLI [Suspect]
     Active Substance: DOSTARLIMAB-GXLY
     Indication: Product used for unknown indication
     Dates: start: 20230519
  2. JEMPERLI [Suspect]
     Active Substance: DOSTARLIMAB-GXLY
     Dates: start: 20230610
  3. JEMPERLI [Suspect]
     Active Substance: DOSTARLIMAB-GXLY
     Dates: start: 20230630
  4. CARBOPLATIN\PACLITAXEL [Concomitant]
     Active Substance: CARBOPLATIN\PACLITAXEL
     Indication: Product used for unknown indication

REACTIONS (4)
  - Blindness [Unknown]
  - Visual impairment [Unknown]
  - Photophobia [Unknown]
  - Disease progression [Unknown]
